FAERS Safety Report 8779298 (Version 1)
Quarter: 2012Q4

REPORT INFORMATION
  Report Type: 
  Country: US (occurrence: US)
  Receive Date: 20120911
  Receipt Date: 20120911
  Transmission Date: 20130627
  Serious: Yes (Other)
  Sender: FDA-Public Use
  Company Number: US-ELI_LILLY_AND_COMPANY-US201208009677

PATIENT
  Sex: Male

DRUGS (3)
  1. HUMULIN R [Suspect]
     Indication: DIABETES MELLITUS
     Dosage: 10 u, qd
     Dates: start: 201105, end: 20120712
  2. SYNTHROID [Concomitant]
     Dosage: UNK, unknown
  3. TYLENOL WITH CODEINE [Concomitant]
     Dosage: UNK, unknown

REACTIONS (3)
  - Renal cancer [Unknown]
  - Hypersensitivity [Unknown]
  - Rhinitis allergic [Unknown]
